FAERS Safety Report 17136761 (Version 1)
Quarter: 2019Q4

REPORT INFORMATION
  Report Type: Spontaneous
  Country: US (occurrence: US)
  Receive Date: 20191210
  Receipt Date: 20191210
  Transmission Date: 20200122
  Serious: Yes (Other)
  Sender: FDA-Public Use
  Company Number: US-AMGEN-USASP2019201204

PATIENT
  Age: 60 Year
  Sex: Female
  Weight: 43.08 kg

DRUGS (7)
  1. FISH OIL [Concomitant]
     Active Substance: FISH OIL
     Dosage: UNK
  2. CALCIUM [Concomitant]
     Active Substance: CALCIUM
     Dosage: UNK UNK, QD
  3. PROBIOTICS [BIFIDOBACTERIUM LONGUM;LACTOBACILLUS ACIDOPHILUS;LACTOBACI [Concomitant]
     Dosage: UNK
  4. PROLIA [Suspect]
     Active Substance: DENOSUMAB
     Indication: OSTEOPOROSIS
     Dosage: 60 MILLIGRAM, Q6MO
     Route: 065
     Dates: start: 20191004, end: 2019
  5. VITAMIN D [COLECALCIFEROL] [Concomitant]
     Active Substance: CHOLECALCIFEROL
     Dosage: UNK UNK, QD
  6. PREDNISONE. [Concomitant]
     Active Substance: PREDNISONE
     Dosage: UNK, TWO DOSES
  7. CURCUMIN [Concomitant]
     Active Substance: CURCUMIN
     Dosage: UNK

REACTIONS (21)
  - Blood pressure increased [Unknown]
  - Vision blurred [Unknown]
  - Lacrimation increased [Unknown]
  - Pain in jaw [Not Recovered/Not Resolved]
  - Respiratory rate increased [Unknown]
  - Nausea [Unknown]
  - Hypertonic bladder [Not Recovered/Not Resolved]
  - Diarrhoea [Unknown]
  - Toothache [Unknown]
  - Pruritus [Unknown]
  - Rash [Recovered/Resolved]
  - Fall [Unknown]
  - Ear disorder [Unknown]
  - Groin pain [Unknown]
  - Dizziness [Unknown]
  - Sleep disorder due to a general medical condition [Unknown]
  - Inflammation [Unknown]
  - Headache [Unknown]
  - Heart rate increased [Unknown]
  - Arthralgia [Unknown]
  - Gingival pain [Unknown]

NARRATIVE: CASE EVENT DATE: 2019
